FAERS Safety Report 8564267-0 (Version None)
Quarter: 2012Q3

REPORT INFORMATION
  Report Type: 
  Country: None (occurrence: None)
  Receive Date: 20120727
  Receipt Date: 20120727
  Transmission Date: 20120928
  Serious: No
  Sender: FDA-Public Use
  Company Number: None

PATIENT
  Age: 60 Year
  Sex: Male
  Weight: 81.6475 kg

DRUGS (9)
  1. ALBUTEROL [Concomitant]
  2. KEPPRA [Concomitant]
  3. TYLENOL [Concomitant]
  4. DECADRON PHOSPHATE [Concomitant]
  5. SYMBICORT [Concomitant]
  6. SYNTHROID [Concomitant]
  7. PROVIGIL [Concomitant]
  8. PANOBINOSTAT, 10 MG [Suspect]
     Indication: NEOPLASM RECURRENCE
     Dosage: 10 MG, QOD, ORAL
     Route: 048
     Dates: start: 20120702, end: 20120713
  9. PANOBINOSTAT, 10 MG [Suspect]
     Indication: GLIOMA
     Dosage: 10 MG, QOD, ORAL
     Route: 048
     Dates: start: 20120702, end: 20120713

REACTIONS (2)
  - FATIGUE [None]
  - ACTIVITIES OF DAILY LIVING IMPAIRED [None]
